FAERS Safety Report 5008367-0 (Version None)
Quarter: 2006Q2

REPORT INFORMATION
  Report Type: 
  Country: None (occurrence: None)
  Receive Date: 20060404
  Receipt Date: 20060127
  Transmission Date: 20061013
  Serious: No
  Sender: FDA-Public Use
  Company Number: US200601005279

PATIENT
  Age: 68 Year
  Sex: Male

DRUGS (5)
  1. CYMBALTA [Suspect]
     Indication: NEURALGIA
     Dosage: 30 MG, ORAL
     Route: 048
     Dates: start: 20060117, end: 20060119
  2. XANAX /USA/ (ALPRAZOLAM) [Concomitant]
  3. OXYCODONE HCL [Concomitant]
  4. PRILOSEC [Concomitant]
  5. ASPIRIN [Concomitant]

REACTIONS (3)
  - ACTIVITIES OF DAILY LIVING IMPAIRED [None]
  - COGNITIVE DISORDER [None]
  - INSOMNIA [None]
